FAERS Safety Report 8785817 (Version 2)
Quarter: 2012Q4

REPORT INFORMATION
  Report Type: 
  Country: PT (occurrence: PT)
  Receive Date: 20120914
  Receipt Date: 20121206
  Transmission Date: 20130627
  Serious: Yes (Other)
  Sender: FDA-Public Use
  Company Number: PT-GLAXOSMITHKLINE-B0830493A

PATIENT
  Age: 49 Year
  Sex: Male

DRUGS (2)
  1. VOTRIENT [Suspect]
     Indication: HYPERCHOLESTEROLAEMIA
     Dosage: 400MG Twice per day
     Route: 048
     Dates: start: 20120612
  2. FENOFIBRATE [Concomitant]
     Indication: HYPERCHOLESTEROLAEMIA
     Dosage: 200MG Per day
     Route: 048

REACTIONS (5)
  - Blood pressure diastolic increased [Not Recovered/Not Resolved]
  - Dysphonia [Not Recovered/Not Resolved]
  - Abdominal pain [Not Recovered/Not Resolved]
  - Aphonia [Not Recovered/Not Resolved]
  - Diarrhoea [Not Recovered/Not Resolved]
